FAERS Safety Report 23093306 (Version 3)
Quarter: 2024Q1

REPORT INFORMATION
  Report Type: Report from Study
  Country: US (occurrence: US)
  Receive Date: 20231022
  Receipt Date: 20240108
  Transmission Date: 20240410
  Serious: No
  Sender: FDA-Public Use
  Company Number: US-002147023-NVSC2023US226700

PATIENT
  Age: 26 Year
  Sex: Male
  Weight: 90.72 kg

DRUGS (1)
  1. KESIMPTA [Suspect]
     Active Substance: OFATUMUMAB
     Indication: Multiple sclerosis
     Dosage: 0.4 ML, QMO
     Route: 058
     Dates: start: 202301, end: 202309

REACTIONS (3)
  - Fine motor skill dysfunction [Unknown]
  - Fatigue [Unknown]
  - Product dose omission issue [Recovered/Resolved]

NARRATIVE: CASE EVENT DATE: 20230901
